FAERS Safety Report 4420719-6 (Version None)
Quarter: 2004Q3

REPORT INFORMATION
  Report Type: 
  Country: None (occurrence: None)
  Receive Date: 20040809
  Receipt Date: 20040505
  Transmission Date: 20050211
  Serious: No
  Sender: FDA-Public Use
  Company Number: US-GLAXOSMITHKLINE-A0509622A

PATIENT
  Sex: Female

DRUGS (4)
  1. PAXIL [Suspect]
     Indication: PANIC DISORDER
     Dosage: 60MG PER DAY
     Route: 048
  2. ALTACE [Concomitant]
  3. HRT [Concomitant]
  4. UNKNOWN MEDICATION [Concomitant]
     Indication: IRRITABLE BOWEL SYNDROME

REACTIONS (1)
  - INSOMNIA [None]
